FAERS Safety Report 20570688 (Version 2)
Quarter: 2022Q3

REPORT INFORMATION
  Report Type: Spontaneous
  Country: US (occurrence: US)
  Receive Date: 20220309
  Receipt Date: 20220927
  Transmission Date: 20221027
  Serious: Yes (Other)
  Sender: FDA-Public Use
  Company Number: US-GILEAD-2022-0572922

PATIENT
  Age: 40 Year
  Sex: Male
  Weight: 92.971 kg

DRUGS (28)
  1. VIREAD [Suspect]
     Active Substance: TENOFOVIR DISOPROXIL FUMARATE
     Indication: HIV infection
     Dosage: UNK
     Route: 048
     Dates: start: 2002
  2. VIREAD [Suspect]
     Active Substance: TENOFOVIR DISOPROXIL FUMARATE
     Dosage: UNK
     Route: 048
     Dates: start: 2003, end: 201612
  3. BIKTARVY [Concomitant]
     Active Substance: BICTEGRAVIR SODIUM\EMTRICITABINE\TENOFOVIR ALAFENAMIDE FUMARATE
  4. CRIXIVAN [Concomitant]
     Active Substance: INDINAVIR SULFATE
  5. EDURANT [Concomitant]
     Active Substance: RILPIVIRINE HYDROCHLORIDE
  6. EMTRIVA [Concomitant]
     Active Substance: EMTRICITABINE
  7. EPIVIR [Concomitant]
     Active Substance: LAMIVUDINE
  8. INTELENCE [Concomitant]
     Active Substance: ETRAVIRINE
  9. ISENTRESS [Concomitant]
     Active Substance: RALTEGRAVIR POTASSIUM
  10. JULUCA [Concomitant]
     Active Substance: DOLUTEGRAVIR SODIUM\RILPIVIRINE HYDROCHLORIDE
  11. KALETRA [Concomitant]
     Active Substance: LOPINAVIR\RITONAVIR
  12. NORVIR [Concomitant]
     Active Substance: RITONAVIR
  13. ODEFSEY [Concomitant]
     Active Substance: EMTRICITABINE\RILPIVIRINE HYDROCHLORIDE\TENOFOVIR ALAFENAMIDE FUMARATE
  14. PIFELTRO [Concomitant]
     Active Substance: DORAVIRINE
  15. SUSTIVA [Concomitant]
     Active Substance: EFAVIRENZ
  16. VIDEX [Concomitant]
     Active Substance: DIDANOSINE
  17. VIRACEPT [Concomitant]
     Active Substance: NELFINAVIR MESYLATE
  18. ZIAGEN [Concomitant]
     Active Substance: ABACAVIR SULFATE
  19. ZERIT [Concomitant]
     Active Substance: STAVUDINE
  20. ANASTROZOLE [Concomitant]
     Active Substance: ANASTROZOLE
  21. BUPROPION [Concomitant]
     Active Substance: BUPROPION
  22. CELEBREX [Concomitant]
     Active Substance: CELECOXIB
  23. ENAPIL [Concomitant]
  24. FAMOTIDINE [Concomitant]
     Active Substance: FAMOTIDINE
  25. HYDROCHLOROTHIAZIDE [Concomitant]
     Active Substance: HYDROCHLOROTHIAZIDE
  26. TYLENOL [Concomitant]
     Active Substance: ACETAMINOPHEN
  27. VALACYCLOVIR [Concomitant]
     Active Substance: VALACYCLOVIR HYDROCHLORIDE
  28. VEMLIDY [Concomitant]
     Active Substance: TENOFOVIR ALAFENAMIDE FUMARATE

REACTIONS (12)
  - Osteoporosis [Not Recovered/Not Resolved]
  - Renal impairment [Unknown]
  - Pain [Not Recovered/Not Resolved]
  - Emotional distress [Not Recovered/Not Resolved]
  - Anxiety [Not Recovered/Not Resolved]
  - Anhedonia [Not Recovered/Not Resolved]
  - Osteopenia [Not Recovered/Not Resolved]
  - Ankle fracture [Not Recovered/Not Resolved]
  - Arthralgia [Not Recovered/Not Resolved]
  - Dysstasia [Not Recovered/Not Resolved]
  - Depression [Unknown]
  - Blood creatinine increased [Not Recovered/Not Resolved]

NARRATIVE: CASE EVENT DATE: 20150701
